FAERS Safety Report 14256988 (Version 1)
Quarter: 2017Q4

REPORT INFORMATION
  Report Type: Spontaneous
  Country: JP (occurrence: JP)
  Receive Date: 20171206
  Receipt Date: 20171206
  Transmission Date: 20180321
  Serious: Yes (Hospitalization)
  Sender: FDA-Public Use
  Company Number: JP-ALLERGAN-1769409US

PATIENT
  Age: 85 Year
  Sex: Female

DRUGS (1)
  1. BOTOX [Suspect]
     Active Substance: ONABOTULINUMTOXINA
     Indication: BLEPHAROSPASM
     Dosage: UNK, SINGLE
     Route: 030
     Dates: start: 2015, end: 2015

REACTIONS (3)
  - Eye pain [Unknown]
  - Dysstasia [Recovering/Resolving]
  - Parkinsonism [Recovering/Resolving]

NARRATIVE: CASE EVENT DATE: 2016
